FAERS Safety Report 15297405 (Version 2)
Quarter: 2018Q3

REPORT INFORMATION
  Report Type: Report from Study
  Country: US (occurrence: US)
  Receive Date: 20180820
  Receipt Date: 20180918
  Transmission Date: 20181010
  Serious: Yes (Other)
  Sender: FDA-Public Use
  Company Number: US-PFIZER INC-2018159140

PATIENT
  Age: 63 Year
  Sex: Female

DRUGS (1)
  1. IBRANCE [Suspect]
     Active Substance: PALBOCICLIB
     Indication: BREAST CANCER FEMALE
     Dosage: 125 MG, CYCLIC (DAILY, 21 DAYS ON, 7 DAYS OFF)
     Route: 048
     Dates: start: 20180410

REACTIONS (6)
  - Abdominal pain upper [Not Recovered/Not Resolved]
  - Bone marrow failure [Recovered/Resolved]
  - Diarrhoea [Unknown]
  - Constipation [Recovering/Resolving]
  - Epistaxis [Recovered/Resolved]
  - Drug dose omission [Unknown]

NARRATIVE: CASE EVENT DATE: 2018
